FAERS Safety Report 8053114-1 (Version None)
Quarter: 2012Q1

REPORT INFORMATION
  Report Type: 
  Country: None (occurrence: None)
  Receive Date: 20120118
  Receipt Date: 20120106
  Transmission Date: 20120608
  Serious: Yes (Hospitalization)
  Sender: FDA-Public Use
  Company Number: FR-UCBSA-048982

PATIENT
  Age: 2 Month
  Sex: Male

DRUGS (1)
  1. KEPPRA [Suspect]
     Indication: CONVULSION
     Dosage: 20 MG/KG/DAY
     Route: 048
     Dates: start: 20111201

REACTIONS (1)
  - SLEEP APNOEA SYNDROME [None]
